FAERS Safety Report 6035768-4 (Version None)
Quarter: 2009Q1

REPORT INFORMATION
  Report Type: 
  Country: None (occurrence: None)
  Receive Date: 20090113
  Receipt Date: 20090108
  Transmission Date: 20090719
  Serious: Yes (Other)
  Sender: FDA-Public Use
  Company Number: US-BIOGENIDEC-2008BI020891

PATIENT
  Sex: Male

DRUGS (1)
  1. TYSABRI [Suspect]
     Indication: MULTIPLE SCLEROSIS
     Route: 042
     Dates: start: 20061207

REACTIONS (3)
  - GAIT DISTURBANCE [None]
  - GENERAL SYMPTOM [None]
  - NUCLEAR MAGNETIC RESONANCE IMAGING ABNORMAL [None]
